FAERS Safety Report 22066646 (Version 1)
Quarter: 2023Q1

REPORT INFORMATION
  Report Type: Spontaneous
  Country: DE (occurrence: DE)
  Receive Date: 20230306
  Receipt Date: 20230306
  Transmission Date: 20230417
  Serious: Yes (Other)
  Sender: FDA-Public Use
  Company Number: DE-002147023-NVSC2023DE049615

PATIENT

DRUGS (4)
  1. DOXORUBICIN [Suspect]
     Active Substance: DOXORUBICIN
     Indication: Hodgkin^s disease stage II
     Dosage: 40 MG/M2 (ON DAYS 1 AND 15)
     Route: 042
  2. VINCRISTINE [Suspect]
     Active Substance: VINCRISTINE
     Indication: Hodgkin^s disease stage II
     Dosage: 1.5 MG/M2 (CAPPED AT 2 MG ON DAYS 1,8 AND 15)
     Route: 042
  3. ETOPOSIDE [Suspect]
     Active Substance: ETOPOSIDE
     Indication: Hodgkin^s disease stage II
     Dosage: 125 MG/M2 (ON DAYS 1-5)
     Route: 042
  4. PREDNISONE [Suspect]
     Active Substance: PREDNISONE
     Indication: Hodgkin^s disease stage II
     Dosage: 60 MG/M2 (ON DAYS 1-15)
     Route: 048

REACTIONS (2)
  - Osteosarcoma [Unknown]
  - Second primary malignancy [Unknown]
